FAERS Safety Report 26114851 (Version 1)
Quarter: 2025Q4

REPORT INFORMATION
  Report Type: Spontaneous
  Country: JP (occurrence: JP)
  Receive Date: 20251203
  Receipt Date: 20251203
  Transmission Date: 20260117
  Serious: Yes (Hospitalization)
  Sender: WAYLIS THERAPEUTICS LLC
  Company Number: JP-WT-2024-04695

PATIENT
  Age: 33 Year
  Sex: Female

DRUGS (3)
  1. LUNESTA [Suspect]
     Active Substance: ESZOPICLONE
     Dosage: 26 TABLETS OF 3 MG
     Route: 048
     Dates: start: 20240709, end: 20240709
  2. DAYVIGO [Suspect]
     Active Substance: LEMBOREXANT
     Dosage: 146 TABLETS OF 5MG
     Route: 048
     Dates: start: 20240709, end: 20240709
  3. ALCOHOL [Interacting]
     Active Substance: ALCOHOL
     Dosage: UNKNOWN QUANTITY
     Route: 048

REACTIONS (5)
  - Suicide attempt [Recovered/Resolved]
  - Intentional overdose [Recovered/Resolved]
  - Labelled drug-alcohol interaction issue [Recovered/Resolved]
  - Dizziness [Recovered/Resolved]
  - Altered state of consciousness [Recovered/Resolved]

NARRATIVE: CASE EVENT DATE: 20240709
